FAERS Safety Report 17139465 (Version 1)
Quarter: 2019Q4

REPORT INFORMATION
  Report Type: Spontaneous
  Country: US (occurrence: US)
  Receive Date: 20191210
  Receipt Date: 20191210
  Transmission Date: 20200122
  Serious: Yes (Life-Threatening, Disabling, Other)
  Sender: FDA-Public Use
  Company Number: None

PATIENT
  Age: 37 Year
  Sex: Female
  Weight: 96.75 kg

DRUGS (1)
  1. PARAGARD T 380A [Suspect]
     Active Substance: COPPER

REACTIONS (7)
  - Alopecia [None]
  - Vaginal discharge [None]
  - Hyperthyroidism [None]
  - Malaise [None]
  - Anxiety [None]
  - Menorrhagia [None]
  - Weight increased [None]

NARRATIVE: CASE EVENT DATE: 20181201
